FAERS Safety Report 4751466-9 (Version None)
Quarter: 2005Q3

REPORT INFORMATION
  Report Type: 
  Country: None (occurrence: None)
  Receive Date: 20050823
  Receipt Date: 20050823
  Transmission Date: 20060218
  Serious: No
  Sender: FDA-Public Use
  Company Number: None

PATIENT
  Age: 94 Year
  Sex: Male
  Weight: 81.6475 kg

DRUGS (1)
  1. GATIFLOXACIN [Suspect]
     Indication: INFECTION
     Dosage: 200MG Q24H
     Dates: start: 20050428, end: 20050505

REACTIONS (1)
  - GLUCOSE TOLERANCE IMPAIRED [None]
